FAERS Safety Report 5217522-6 (Version None)
Quarter: 2007Q1

REPORT INFORMATION
  Report Type: 
  Country: None (occurrence: None)
  Receive Date: 20070124
  Receipt Date: 20070112
  Transmission Date: 20070707
  Serious: Yes (Other)
  Sender: FDA-Public Use
  Company Number: HU-NOVOPROD-260112

PATIENT
  Age: 75 Year
  Sex: Female
  Weight: 89 kg

DRUGS (2)
  1. LEVEMIR [Suspect]
     Indication: INSULIN-REQUIRING TYPE II DIABETES MELLITUS
     Route: 058
     Dates: start: 20061020, end: 20070112
  2. INSULATARD PENFILL [Concomitant]
     Indication: INSULIN-REQUIRING TYPE II DIABETES MELLITUS
     Dates: start: 20070112

REACTIONS (2)
  - HOT FLUSH [None]
  - VERTIGO [None]
